FAERS Safety Report 8780381 (Version 1)
Quarter: 2012Q4

REPORT INFORMATION
  Report Type: Spontaneous
  Country: US (occurrence: None)
  Receive Date: 20120905
  Receipt Date: 20120905
  Transmission Date: 20130627
  Serious: Yes (Hospitalization)
  Sender: FDA-Public Use
  Company Number: None

PATIENT
  Age: 59 Year
  Sex: Male
  Weight: 62.6 kg

DRUGS (1)
  1. REMICADE [Suspect]
     Dates: start: 20120530, end: 20120627

REACTIONS (9)
  - Peripheral coldness [None]
  - Weight decreased [None]
  - Diarrhoea [None]
  - Oropharyngeal pain [None]
  - Dehydration [None]
  - Oesophagitis [None]
  - Candidiasis [None]
  - Oedema peripheral [None]
  - Mass [None]
